FAERS Safety Report 5220250-4 (Version None)
Quarter: 2007Q1

REPORT INFORMATION
  Report Type: 
  Country: None (occurrence: None)
  Receive Date: 20061121
  Receipt Date: 20060731
  Transmission Date: 20070707
  Serious: No
  Sender: FDA-Public Use
  Company Number: TPA2006A01115

PATIENT
  Age: 61 Year
  Sex: Female
  Weight: 65.318 kg

DRUGS (4)
  1. ROZEREM [Suspect]
     Indication: INSOMNIA
     Dosage: 8 MG, QHS, PER ORAL
     Route: 048
     Dates: start: 20060712, end: 20060713
  2. WELCHOL (COLESEVELAM HYDROCHLORIDE) (625 MILLIGRAM) [Concomitant]
  3. BONIVA (IBANDRONATE SODIUM) (150 MILLIGRAM) [Concomitant]
  4. ASPIRIN [Concomitant]

REACTIONS (6)
  - DEREALISATION [None]
  - DIZZINESS [None]
  - FEAR OF FALLING [None]
  - FEELING ABNORMAL [None]
  - HALLUCINATION [None]
  - POOR QUALITY SLEEP [None]
